FAERS Safety Report 13066732 (Version 1)
Quarter: 2016Q4

REPORT INFORMATION
  Report Type: Spontaneous
  Country: US (occurrence: US)
  Receive Date: 20161227
  Receipt Date: 20161227
  Transmission Date: 20170207
  Serious: No
  Sender: FDA-Public Use
  Company Number: US-TEIKOKU PHARMA USA-TPU2016-00884

PATIENT
  Sex: Female
  Weight: 107.14 kg

DRUGS (13)
  1. LIDODERM [Suspect]
     Active Substance: LIDOCAINE
  2. LYRICA [Concomitant]
     Active Substance: PREGABALIN
     Dates: start: 20160202
  3. DUONEB [Concomitant]
     Active Substance: ALBUTEROL SULFATE\IPRATROPIUM BROMIDE
  4. CELEBREX [Concomitant]
     Active Substance: CELECOXIB
     Route: 048
     Dates: start: 20160504
  5. MUCINEX DM MAXIMUM STRENGTH [Concomitant]
     Active Substance: DEXTROMETHORPHAN HYDROBROMIDE\GUAIFENESIN
     Dosage: 60-1200MG
     Route: 048
  6. POTASSIUM OVER THE COUNTER [Concomitant]
  7. PROAIR HFA [Concomitant]
     Active Substance: ALBUTEROL SULFATE
     Dosage: 2 INHALATION EVERY TWENTY-FOUR HOURS AS NEEDED
     Dates: start: 20160504
  8. ROPINIROLE HCL [Concomitant]
     Active Substance: ROPINIROLE HYDROCHLORIDE
     Dosage: 2 IN AM, 4 IN PM
     Route: 048
     Dates: start: 20160205
  9. OMEPRAZOLE. [Concomitant]
     Active Substance: OMEPRAZOLE
     Route: 048
     Dates: start: 20150602
  10. IRON [Concomitant]
     Active Substance: IRON
     Route: 048
  11. CELEXA [Concomitant]
     Active Substance: CITALOPRAM HYDROBROMIDE
     Route: 048
     Dates: start: 20150602
  12. SYMBICORT [Concomitant]
     Active Substance: BUDESONIDE\FORMOTEROL FUMARATE DIHYDRATE
     Dates: start: 20160504
  13. NO DRUG NAME [Concomitant]

REACTIONS (1)
  - Rash [Unknown]
